FAERS Safety Report 10058223 (Version 1)
Quarter: 2014Q2

REPORT INFORMATION
  Report Type: Report from Study
  Country: FR (occurrence: FR)
  Receive Date: 20140404
  Receipt Date: 20140404
  Transmission Date: 20141212
  Serious: Yes (Other)
  Sender: FDA-Public Use
  Company Number: FR-ROCHE-1374609

PATIENT
  Sex: Female

DRUGS (4)
  1. RITUXIMAB [Suspect]
     Indication: RHEUMATOID ARTHRITIS
     Route: 065
     Dates: start: 20080418
  2. RITUXIMAB [Suspect]
     Route: 065
     Dates: start: 20080505
  3. RITUXIMAB [Suspect]
     Route: 065
     Dates: start: 20090108, end: 20090406
  4. METHOTREXATE [Concomitant]
     Route: 065

REACTIONS (1)
  - Temporal arteritis [Recovered/Resolved]
